FAERS Safety Report 9645278 (Version 4)
Quarter: 2013Q4

REPORT INFORMATION
  Report Type: Report from Study
  Country: US (occurrence: US)
  Receive Date: 20131025
  Receipt Date: 20131122
  Transmission Date: 20140711
  Serious: Yes (Other)
  Sender: FDA-Public Use
  Company Number: PHEH2013US021102

PATIENT
  Sex: Female

DRUGS (4)
  1. GILENYA [Suspect]
     Indication: MULTIPLE SCLEROSIS
     Dosage: 0.5 MG, QD
     Route: 048
     Dates: end: 201308
  2. ADDERALL [Concomitant]
  3. TRAMADOL [Concomitant]
  4. METFORMIN [Concomitant]

REACTIONS (7)
  - Heart rate increased [Not Recovered/Not Resolved]
  - Electrocardiogram abnormal [Unknown]
  - Chest pain [Unknown]
  - Fatigue [Unknown]
  - Blood pressure increased [Recovered/Resolved]
  - Nasopharyngitis [Not Recovered/Not Resolved]
  - Vision blurred [Recovering/Resolving]
